FAERS Safety Report 26035692 (Version 1)
Quarter: 2025Q4

REPORT INFORMATION
  Report Type: Spontaneous
  Country: US (occurrence: None)
  Receive Date: 20251112
  Receipt Date: 20251112
  Transmission Date: 20260117
  Serious: Yes (Hospitalization)
  Sender: FDA-CTU
  Company Number: None

PATIENT
  Sex: Female

DRUGS (1)
  1. RINVOQ [Suspect]
     Active Substance: UPADACITINIB
     Indication: Ankylosing spondylitis
     Dosage: OTHER FREQUENCY : 1 TIME A DAY;?
     Route: 048
     Dates: start: 20240904

REACTIONS (6)
  - Ankylosing spondylitis [None]
  - Peripheral swelling [None]
  - Hepatic cyst [None]
  - Tibia fracture [None]
  - Fibula fracture [None]
  - Accident [None]
